FAERS Safety Report 5024856-7 (Version None)
Quarter: 2006Q2

REPORT INFORMATION
  Report Type: 
  Country: None (occurrence: None)
  Receive Date: 20060426
  Receipt Date: 20060113
  Transmission Date: 20061013
  Serious: Yes (Other)
  Sender: FDA-Public Use
  Company Number: 2006009474

PATIENT
  Age: 61 Year
  Sex: Female
  Weight: 86.1834 kg

DRUGS (8)
  1. LYRICA [Suspect]
     Indication: ILL-DEFINED DISORDER
     Dosage: 50 MG (50 MG, 1 IN 1 D)
     Dates: start: 20051230, end: 20060106
  2. ZANAFLEX [Concomitant]
  3. SOMA [Concomitant]
  4. GLUCOSAMINE (GLUCOSAMINE) [Concomitant]
  5. LOTREL [Concomitant]
  6. BENICAR [Concomitant]
  7. OMEPRAZOLE [Concomitant]
  8. ALL OTHER THERAPEUTIC PRODUCTS (ALL OTHER THERAPEUTIC PRODUCTS) [Concomitant]

REACTIONS (12)
  - BURNING SENSATION [None]
  - CONDITION AGGRAVATED [None]
  - DIZZINESS [None]
  - DRY MOUTH [None]
  - FEELING ABNORMAL [None]
  - FLATULENCE [None]
  - HEADACHE [None]
  - NAUSEA [None]
  - SWELLING FACE [None]
  - THINKING ABNORMAL [None]
  - TOOTH FRACTURE [None]
  - URTICARIA [None]
